FAERS Safety Report 5672854-2 (Version None)
Quarter: 2008Q1

REPORT INFORMATION
  Report Type: 
  Country: None (occurrence: None)
  Receive Date: 20080317
  Receipt Date: 20080303
  Transmission Date: 20080703
  Serious: Yes (Other)
  Sender: FDA-Public Use
  Company Number: B0511422A

PATIENT
  Age: 58 Year
  Sex: Male

DRUGS (3)
  1. MELPHALAN (FORMULATION UNKNOWN) (GENERIC) (MELPHALAN) [Suspect]
     Indication: BONE MARROW TRANSPLANT
     Dosage: INTRAVENOUS
     Route: 042
     Dates: start: 20070301
  2. FLUDARABINE PHOSPHATE [Suspect]
     Indication: BONE MARROW TRANSPLANT
     Dosage: INTRAVENOUS
     Route: 042
     Dates: start: 20070301
  3. RANIMUSTINE (FORMULATION UNKNOWN) (RANIMUSTINE) [Suspect]
     Indication: BONE MARROW TRANSPLANT
     Dosage: INTRAVENOUS
     Route: 042
     Dates: start: 20070301

REACTIONS (9)
  - BRAIN NATRIURETIC PEPTIDE INCREASED [None]
  - CHEST PAIN [None]
  - DILATATION VENTRICULAR [None]
  - DYSPNOEA [None]
  - EJECTION FRACTION DECREASED [None]
  - ELECTROCARDIOGRAM T WAVE INVERSION [None]
  - HYPOKINESIA [None]
  - INFECTION [None]
  - STRESS CARDIOMYOPATHY [None]
